FAERS Safety Report 19425673 (Version 1)
Quarter: 2021Q2

REPORT INFORMATION
  Report Type: Spontaneous
  Country: NO (occurrence: NO)
  Receive Date: 20210616
  Receipt Date: 20210616
  Transmission Date: 20210717
  Serious: Yes (Life-Threatening)
  Sender: FDA-Public Use
  Company Number: NO-ALXN-A202106783

PATIENT
  Sex: Male

DRUGS (1)
  1. SOLIRIS [Suspect]
     Active Substance: ECULIZUMAB
     Indication: ANAEMIA
     Dosage: UNK, 300 MG X 3 VIALS
     Route: 042
     Dates: start: 20200611

REACTIONS (1)
  - Off label use [Unknown]
